FAERS Safety Report 24193526 (Version 1)
Quarter: 2024Q3

REPORT INFORMATION
  Report Type: Spontaneous
  Country: DE (occurrence: DE)
  Receive Date: 20240809
  Receipt Date: 20240809
  Transmission Date: 20241017
  Serious: Yes (Other)
  Sender: RANBAXY
  Company Number: DE-SUN PHARMACEUTICAL INDUSTRIES LTD-2024RR-461652

PATIENT

DRUGS (2)
  1. IMATINIB [Suspect]
     Active Substance: IMATINIB
     Indication: Malignant melanoma of sites other than skin
     Dosage: UNK
     Route: 065
  2. NILOTINIB [Suspect]
     Active Substance: NILOTINIB
     Indication: Malignant melanoma of sites other than skin
     Dosage: UNK
     Route: 065

REACTIONS (3)
  - Therapy non-responder [Unknown]
  - Disease progression [Unknown]
  - Therapy responder [Unknown]
